FAERS Safety Report 8371707-9 (Version None)
Quarter: 2012Q2

REPORT INFORMATION
  Report Type: 
  Country: None (occurrence: None)
  Receive Date: 20120518
  Receipt Date: 20120509
  Transmission Date: 20120825
  Serious: Yes (Other)
  Sender: FDA-Public Use
  Company Number: US-ROCHE-1022760

PATIENT
  Sex: Female

DRUGS (2)
  1. ACTONEL [Suspect]
     Indication: OSTEOPOROSIS
     Route: 065
  2. BONIVA [Suspect]
     Indication: OSTEOPOROSIS
     Route: 048

REACTIONS (2)
  - OSTEONECROSIS OF JAW [None]
  - ANXIETY [None]
